FAERS Safety Report 20151058 (Version 4)
Quarter: 2022Q1

REPORT INFORMATION
  Report Type: Spontaneous
  Country: FI (occurrence: FI)
  Receive Date: 20211206
  Receipt Date: 20220107
  Transmission Date: 20220424
  Serious: Yes (Other)
  Sender: FDA-Public Use
  Company Number: FI-MYLANLABS-2021M1086356

PATIENT
  Age: 22 Year
  Sex: Female

DRUGS (12)
  1. OLANZAPINE [Suspect]
     Active Substance: OLANZAPINE
     Indication: Dissociative disorder
     Dosage: UNK UNK, UNKNOWN
     Route: 065
     Dates: start: 202109
  2. OLANZAPINE [Suspect]
     Active Substance: OLANZAPINE
     Dosage: 15 MG, DAILY (5 + 10 MG)
     Route: 065
     Dates: end: 202111
  3. OLANZAPINE [Suspect]
     Active Substance: OLANZAPINE
     Dosage: 5 MILLIGRAM, BID
     Route: 065
     Dates: end: 20211118
  4. CLOZAPINE [Suspect]
     Active Substance: CLOZAPINE
     Indication: Dissociative disorder
     Dosage: 12.5 MG, EACH MORNING
     Route: 065
     Dates: start: 20211015
  5. CLOZAPINE [Suspect]
     Active Substance: CLOZAPINE
     Dosage: 75 MG, EACH EVENING
     Route: 065
     Dates: start: 20211015
  6. HALOPERIDOL [Concomitant]
     Active Substance: HALOPERIDOL
     Indication: Product used for unknown indication
  7. DEPRAKINE [VALPROIC ACID] [Concomitant]
     Indication: Product used for unknown indication
  8. LORAZEPAM [Concomitant]
     Active Substance: LORAZEPAM
     Indication: Product used for unknown indication
  9. SARANASE [Concomitant]
     Indication: Product used for unknown indication
  10. LITHIUM CARBONATE [Concomitant]
     Active Substance: LITHIUM CARBONATE
     Indication: Product used for unknown indication
  11. VALPROATE SODIUM [Concomitant]
     Active Substance: VALPROATE SODIUM
     Indication: Product used for unknown indication
  12. ASTEMIZOLE [Concomitant]
     Active Substance: ASTEMIZOLE
     Indication: Product used for unknown indication

REACTIONS (2)
  - Neutropenia [Not Recovered/Not Resolved]
  - Off label use [Unknown]

NARRATIVE: CASE EVENT DATE: 20211015
